FAERS Safety Report 5012618-6 (Version None)
Quarter: 2006Q2

REPORT INFORMATION
  Report Type: 
  Country: None (occurrence: None)
  Receive Date: 20060411
  Receipt Date: 20060110
  Transmission Date: 20061013
  Serious: No
  Sender: FDA-Public Use
  Company Number: 2006S1000010

PATIENT
  Sex: Female

DRUGS (5)
  1. CUBICIN [Suspect]
     Indication: POSTOPERATIVE WOUND INFECTION
     Dosage: 4 MG/KG
  2. CUBICIN [Suspect]
     Indication: WOUND INFECTION STAPHYLOCOCCAL
     Dosage: 4 MG/KG
  3. ERTAPENEM [Concomitant]
  4. METRONIDAZOLE [Concomitant]
  5. GENTAMICIN [Concomitant]

REACTIONS (1)
  - BLOOD UREA INCREASED [None]
